FAERS Safety Report 22340213 (Version 3)
Quarter: 2023Q2

REPORT INFORMATION
  Report Type: Spontaneous
  Country: CA (occurrence: CA)
  Receive Date: 20230518
  Receipt Date: 20230627
  Transmission Date: 20230721
  Serious: Yes (Other)
  Sender: FDA-Public Use
  Company Number: CA-AMERICAN REGENT INC-2023001156

PATIENT
  Sex: Female

DRUGS (1)
  1. VENOFER [Suspect]
     Active Substance: IRON SUCROSE
     Indication: Product used for unknown indication
     Dosage: 300 MILLIGRAM
     Route: 042
     Dates: start: 20230504, end: 20230504

REACTIONS (9)
  - Pulse abnormal [Recovering/Resolving]
  - Pallor [Recovering/Resolving]
  - Blood pressure immeasurable [Recovered/Resolved]
  - Malaise [Recovering/Resolving]
  - Hyperhidrosis [Recovering/Resolving]
  - Nausea [Recovered/Resolved]
  - Dizziness [Recovered/Resolved]
  - Asthenia [Not Recovered/Not Resolved]
  - Product quality issue [Unknown]

NARRATIVE: CASE EVENT DATE: 20230504
